FAERS Safety Report 16902441 (Version 2)
Quarter: 2020Q1

REPORT INFORMATION
  Report Type: Spontaneous
  Country: FR (occurrence: FR)
  Receive Date: 20191010
  Receipt Date: 20200214
  Transmission Date: 20200409
  Serious: Yes (Life-Threatening)
  Sender: FDA-Public Use
  Company Number: FR-ACCORD-156914

PATIENT
  Age: 63 Year
  Sex: Male
  Weight: 115 kg

DRUGS (4)
  1. XARELTO [Suspect]
     Active Substance: RIVAROXABAN
     Indication: ATRIAL FIBRILLATION
     Dosage: 20 MG, COATED TABLET
     Route: 048
     Dates: start: 2016, end: 20190814
  2. BISOPROLOL [Suspect]
     Active Substance: BISOPROLOL
     Indication: HYPERTENSION
     Route: 048
     Dates: end: 20190814
  3. ATORVASTATIN/ATORVASTATIN CALCIUM [Suspect]
     Active Substance: ATORVASTATIN CALCIUM
     Indication: PROPHYLAXIS
     Route: 048
     Dates: end: 20190814
  4. ROFERON-A [Suspect]
     Active Substance: INTERFERON ALFA-2A
     Indication: CUTANEOUS T-CELL LYMPHOMA
     Route: 058
     Dates: start: 201812, end: 20190814

REACTIONS (2)
  - Drug ineffective [Unknown]
  - Ischaemic stroke [Recovered/Resolved with Sequelae]

NARRATIVE: CASE EVENT DATE: 20190814
